FAERS Safety Report 8356443 (Version 9)
Quarter: 2014Q2

REPORT INFORMATION
  Report Type: Spontaneous
  Country: US (occurrence: US)
  Receive Date: 20120126
  Receipt Date: 20140513
  Transmission Date: 20141212
  Serious: Yes (Death, Hospitalization)
  Sender: FDA-Public Use
  Company Number: US-JNJFOC-20120109913

PATIENT
  Age: 28 Year
  Sex: Female
  Weight: 45.36 kg

DRUGS (5)
  1. TYLENOL [Suspect]
     Route: 048
  2. TYLENOL [Suspect]
     Indication: BACK PAIN
     Route: 048
     Dates: start: 20110105, end: 20110107
  3. ETHANOL [Suspect]
     Indication: PRODUCT USED FOR UNKNOWN INDICATION
     Route: 065
  4. ASPIRIN [Suspect]
     Indication: BACK PAIN
     Route: 065
  5. IBUPROFEN [Concomitant]
     Indication: PRODUCT USED FOR UNKNOWN INDICATION
     Route: 065

REACTIONS (11)
  - Brain herniation [Unknown]
  - Metabolic acidosis [Fatal]
  - Coagulopathy [Fatal]
  - Toxicity to various agents [Fatal]
  - Hepatic necrosis [Fatal]
  - Brain oedema [Not Recovered/Not Resolved]
  - Acute hepatic failure [Not Recovered/Not Resolved]
  - Intracranial pressure increased [Not Recovered/Not Resolved]
  - Cerebral disorder [Unknown]
  - Overdose [Fatal]
  - Drug screen positive [Unknown]
